FAERS Safety Report 11359055 (Version 1)
Quarter: 2015Q3

REPORT INFORMATION
  Report Type: Spontaneous
  Country: US (occurrence: None)
  Receive Date: 20150807
  Receipt Date: 20150807
  Transmission Date: 20151125
  Serious: No
  Sender: FDA-Public Use
  Company Number: None

PATIENT
  Age: 31 Year
  Sex: Female

DRUGS (15)
  1. MEDOXYPROGESTERONE [Concomitant]
  2. HYDROMORPHONE [Concomitant]
     Active Substance: HYDROMORPHONE
  3. METHADONE [Concomitant]
     Active Substance: METHADONE HYDROCHLORIDE
  4. SILDENAFIL. [Concomitant]
     Active Substance: SILDENAFIL
  5. ZOLPIDEM [Concomitant]
     Active Substance: ZOLPIDEM\ZOLPIDEM TARTRATE
  6. DSS [Concomitant]
     Active Substance: DOCUSATE SODIUM
  7. LISINOPRIL. [Concomitant]
     Active Substance: LISINOPRIL
  8. HYDROMORPHONE [Concomitant]
     Active Substance: HYDROMORPHONE
  9. TIZANIDINE. [Concomitant]
     Active Substance: TIZANIDINE
  10. FLUOXETINE [Concomitant]
     Active Substance: FLUOXETINE\FLUOXETINE HYDROCHLORIDE
  11. LEVOTHYROXINE. [Concomitant]
     Active Substance: LEVOTHYROXINE
  12. ALPRAZOLAM. [Concomitant]
     Active Substance: ALPRAZOLAM
  13. FERROUS SULFATE [Concomitant]
     Active Substance: FERROUS SULFATE\FERROUS SULFATE, DRIED
  14. TRACLEER [Suspect]
     Active Substance: BOSENTAN
     Indication: COR PULMONALE CHRONIC
     Route: 048
     Dates: start: 201412
  15. WARFARIN [Concomitant]
     Active Substance: WARFARIN

REACTIONS (1)
  - Liver function test abnormal [None]

NARRATIVE: CASE EVENT DATE: 20150805
